FAERS Safety Report 4685287-2 (Version None)
Quarter: 2005Q2

REPORT INFORMATION
  Report Type: 
  Country: None (occurrence: None)
  Receive Date: 20050603
  Receipt Date: 20050523
  Transmission Date: 20051028
  Serious: Yes (Other)
  Sender: FDA-Public Use
  Company Number: 2004240387BR

PATIENT
  Age: 59 Year
  Sex: Female

DRUGS (3)
  1. BEXTRA [Suspect]
     Indication: MUSCULOSKELETAL PAIN
     Dosage: 40 MG (40 MG, 1 IN 1 D); ORAL
     Route: 048
     Dates: start: 20041001, end: 20050401
  2. ARAVA [Concomitant]
  3. DICLOFENAC SODIUM [Concomitant]

REACTIONS (4)
  - FUNGAL INFECTION [None]
  - HYPERSENSITIVITY [None]
  - SKIN EXFOLIATION [None]
  - SPINAL OPERATION [None]
